FAERS Safety Report 21889400 (Version 1)
Quarter: 2023Q1

REPORT INFORMATION
  Report Type: Other
  Country: CN (occurrence: None)
  Receive Date: 20230120
  Receipt Date: 20230120
  Transmission Date: 20230418
  Serious: Yes (Other)
  Sender: FDA-Public Use
  Company Number: CN-ROCHE-3265929

PATIENT
  Age: 43 Year
  Sex: Female

DRUGS (2)
  1. CAPECITABINE [Suspect]
     Active Substance: CAPECITABINE
     Indication: Colorectal cancer
     Dosage: FOR 14 DAYS REPEAT EVERY 3 WEEKS
     Route: 048
     Dates: start: 20181009, end: 20190223
  2. OXALIPLATIN [Suspect]
     Active Substance: OXALIPLATIN
     Indication: Colorectal cancer
     Dosage: DAY 1
     Route: 042
     Dates: start: 20181009, end: 20190223

REACTIONS (2)
  - Colorectal cancer metastatic [Recovered/Resolved]
  - Disease progression [Recovered/Resolved]
